FAERS Safety Report 4585688-7 (Version None)
Quarter: 2005Q1

REPORT INFORMATION
  Report Type: 
  Country: None (occurrence: None)
  Receive Date: 20050214
  Receipt Date: 20050125
  Transmission Date: 20050727
  Serious: Yes (Hospitalization)
  Sender: FDA-Public Use
  Company Number: 2005017707

PATIENT
  Age: 45 Year
  Sex: Female

DRUGS (6)
  1. CARDENALIN (DOXAZOSIN) [Suspect]
     Indication: ILL-DEFINED DISORDER
     Dosage: 4 MG, ORAL
     Route: 048
     Dates: start: 20041223
  2. AMOXICILLIN [Suspect]
     Indication: NASOPHARYNGITIS
     Dosage: 3 TABLETS, ORAL
     Route: 048
     Dates: start: 20050111
  3. CARBOCISTEINE (CARBOCISTEINE) [Suspect]
     Indication: NASOPHARYNGITIS
     Dosage: 3 TABLETS, ORAL
     Route: 048
     Dates: start: 20050111
  4. ANTIBIOTICS (ANTIBIOTICS) [Suspect]
     Indication: NASOPHARYNGITIS
     Dosage: ORAL
     Route: 048
     Dates: start: 20050111
  5. ALACEPRIL (ALACEPRIL) [Concomitant]
  6. NITRENDIPINE (NITRENDIPINE) [Concomitant]

REACTIONS (3)
  - DIALYSIS [None]
  - RENAL FAILURE [None]
  - RHABDOMYOLYSIS [None]
